FAERS Safety Report 9648118 (Version 6)
Quarter: 2014Q3

REPORT INFORMATION
  Report Type: Spontaneous
  Country: US (occurrence: US)
  Receive Date: 20131028
  Receipt Date: 20140731
  Transmission Date: 20150326
  Serious: Yes (Life-Threatening, Hospitalization, Other)
  Sender: FDA-Public Use
  Company Number: PHEH2013US022357

PATIENT
  Age: 75 Year
  Sex: Female

DRUGS (6)
  1. RECLAST [Suspect]
     Active Substance: ZOLEDRONIC ACID
     Dosage: UNK
     Route: 042
     Dates: start: 20130312
  2. MULTI-VIT [Concomitant]
     Active Substance: VITAMINS
     Dosage: UNK
  3. RECLAST [Suspect]
     Active Substance: ZOLEDRONIC ACID
     Indication: OSTEITIS DEFORMANS
     Dosage: UNK
     Route: 042
     Dates: start: 20120312
  4. VITAMIN B12 [Concomitant]
     Active Substance: CYANOCOBALAMIN
  5. RECLAST [Suspect]
     Active Substance: ZOLEDRONIC ACID
     Dosage: UNK
  6. CENTRUM SILVER [Concomitant]
     Active Substance: VITAMINS
     Dosage: UNK UKN, UNK

REACTIONS (41)
  - Gallbladder disorder [Recovering/Resolving]
  - Movement disorder [Unknown]
  - Dizziness [Unknown]
  - Diarrhoea [Unknown]
  - Haemorrhage [Unknown]
  - General physical health deterioration [Unknown]
  - Memory impairment [Unknown]
  - Tooth loss [Unknown]
  - Anxiety [Unknown]
  - Feeling abnormal [Unknown]
  - Alopecia [Unknown]
  - Chromaturia [Unknown]
  - Urinary tract infection [Recovering/Resolving]
  - Arthralgia [Unknown]
  - Gait disturbance [Unknown]
  - Swelling face [Unknown]
  - Asthenia [Not Recovered/Not Resolved]
  - Nausea [Recovering/Resolving]
  - Paraesthesia [Unknown]
  - Haematemesis [Unknown]
  - Thyroid disorder [Unknown]
  - Muscle spasms [Unknown]
  - Pain in jaw [Unknown]
  - Influenza like illness [Unknown]
  - Peripheral swelling [Unknown]
  - Diabetes mellitus [Unknown]
  - Renal failure [Unknown]
  - Renal cyst [Unknown]
  - Hepatic cyst [Unknown]
  - Tongue haemorrhage [Unknown]
  - Lower gastrointestinal haemorrhage [Recovering/Resolving]
  - Pollakiuria [Unknown]
  - Malaise [Unknown]
  - Pain in extremity [Unknown]
  - Melaena [Unknown]
  - Urine odour abnormal [Unknown]
  - Pain [Unknown]
  - Vomiting [Recovering/Resolving]
  - Biliary cyst [Unknown]
  - Muscle twitching [Unknown]
  - Balance disorder [Unknown]

NARRATIVE: CASE EVENT DATE: 201303
